FAERS Safety Report 9779950 (Version 3)
Quarter: 2014Q1

REPORT INFORMATION
  Report Type: Spontaneous
  Country: ES (occurrence: ES)
  Receive Date: 20131223
  Receipt Date: 20140227
  Transmission Date: 20141002
  Serious: Yes (Death, Hospitalization)
  Sender: FDA-Public Use
  Company Number: ES-B.I. PHARMACEUTICALS,INC./RIDGEFIELD-2013-BI-41517ES

PATIENT
  Age: 76 Year
  Sex: Male

DRUGS (6)
  1. PRADAXA [Suspect]
     Indication: INFARCTION
     Dosage: 300 MG
     Route: 048
     Dates: start: 201310, end: 20131210
  2. AVIDART [Concomitant]
     Route: 065
  3. ATORVASTATINA [Concomitant]
     Indication: BLOOD CHOLESTEROL INCREASED
     Route: 065
  4. FUROSEMIDE [Concomitant]
     Route: 065
  5. ADIRO [Concomitant]
     Dosage: 300 MG
     Route: 048
     Dates: end: 20131210
  6. ADIRO [Concomitant]
     Dosage: 300 MG
     Route: 048
     Dates: start: 20131216

REACTIONS (5)
  - Haemorrhage [Fatal]
  - Fatigue [Recovered/Resolved]
  - Pain in extremity [Recovered/Resolved]
  - Abdominal pain [Recovered/Resolved]
  - Faeces discoloured [Not Recovered/Not Resolved]
